FAERS Safety Report 8772761 (Version 3)
Quarter: 2013Q3

REPORT INFORMATION
  Report Type: Spontaneous
  Country: US (occurrence: US)
  Receive Date: 20120907
  Receipt Date: 20130703
  Transmission Date: 20140515
  Serious: Yes (Hospitalization, Disabling, Other)
  Sender: FDA-Public Use
  Company Number: US-009507513-1208USA011470

PATIENT
  Sex: Female

DRUGS (6)
  1. FOSAMAX [Suspect]
     Indication: BONE LOSS
     Dosage: 70 UNK, QW
     Route: 048
     Dates: end: 2006
  2. ACTONEL [Suspect]
     Indication: BONE LOSS
     Dosage: 35 MG, UNK
     Dates: start: 2006, end: 2010
  3. PROTONIX [Concomitant]
  4. SYNTHROID [Concomitant]
  5. COLACE [Concomitant]
  6. PANTOTHENIC ACID [Concomitant]

REACTIONS (10)
  - Femur fracture [Not Recovered/Not Resolved]
  - Low turnover osteopathy [Not Recovered/Not Resolved]
  - Intramedullary rod insertion [Unknown]
  - Cholecystectomy [Unknown]
  - Hypertension [Not Recovered/Not Resolved]
  - Hypothyroidism [Unknown]
  - Hyperlipidaemia [Unknown]
  - Breast lump removal [Unknown]
  - Anaemia postoperative [Unknown]
  - Procedural pain [Unknown]
